FAERS Safety Report 15416362 (Version 1)
Quarter: 2018Q3

REPORT INFORMATION
  Report Type: Spontaneous
  Country: US (occurrence: US)
  Receive Date: 20180924
  Receipt Date: 20180924
  Transmission Date: 20181010
  Serious: Yes (Other)
  Sender: FDA-Public Use
  Company Number: US-AUROBINDO-AUR-APL-2018-046063

PATIENT
  Age: 57 Year
  Sex: Male

DRUGS (18)
  1. BACLOFEN. [Concomitant]
     Active Substance: BACLOFEN
     Indication: SKIN BURNING SENSATION
     Dosage: 10 MILLIGRAM, DAILY
     Route: 065
  2. FENTANYL. [Concomitant]
     Active Substance: FENTANYL
     Indication: ALLODYNIA
  3. GABAPENTIN. [Concomitant]
     Active Substance: GABAPENTIN
     Indication: ALLODYNIA
  4. LIDOCAINE. [Concomitant]
     Active Substance: LIDOCAINE
     Indication: SKIN BURNING SENSATION
     Dosage: UNK
     Route: 065
  5. LIDOCAINE. [Concomitant]
     Active Substance: LIDOCAINE
     Indication: ALLODYNIA
  6. PREGABALIN. [Suspect]
     Active Substance: PREGABALIN
     Indication: SKIN BURNING SENSATION
     Dosage: 75 MILLIGRAM, TWO TIMES A DAY
     Route: 065
  7. DICLOFENAC [Concomitant]
     Active Substance: DICLOFENAC
     Indication: ALLODYNIA
  8. FENTANYL. [Concomitant]
     Active Substance: FENTANYL
     Indication: SKIN BURNING SENSATION
     Dosage: 50 MCG, EVERY HOUR
     Route: 065
  9. OXYCODONE AND ACETAMINOPHEN [Concomitant]
     Active Substance: ACETAMINOPHEN\OXYCODONE HYDROCHLORIDE
     Indication: ALLODYNIA
  10. DULOXETINE. [Suspect]
     Active Substance: DULOXETINE
     Indication: SKIN BURNING SENSATION
     Dosage: UNK
     Route: 065
  11. DULOXETINE. [Suspect]
     Active Substance: DULOXETINE
     Indication: ALLODYNIA
  12. PREGABALIN. [Suspect]
     Active Substance: PREGABALIN
     Indication: ALLODYNIA
     Dosage: 100 MILLIGRAM, ONCE A DAY
     Route: 065
  13. DICLOFENAC [Concomitant]
     Active Substance: DICLOFENAC
     Indication: SKIN BURNING SENSATION
     Dosage: UNK
     Route: 061
  14. AMITRIPTYLINE [Concomitant]
     Active Substance: AMITRIPTYLINE
     Indication: ALLODYNIA
  15. BACLOFEN. [Concomitant]
     Active Substance: BACLOFEN
     Indication: ALLODYNIA
  16. OXYCODONE AND ACETAMINOPHEN [Concomitant]
     Active Substance: ACETAMINOPHEN\OXYCODONE HYDROCHLORIDE
     Indication: SKIN BURNING SENSATION
     Dosage: 10/325 EIGHT TABLETS
     Route: 065
  17. GABAPENTIN. [Concomitant]
     Active Substance: GABAPENTIN
     Indication: SKIN BURNING SENSATION
     Dosage: UNK
     Route: 065
  18. AMITRIPTYLINE [Concomitant]
     Active Substance: AMITRIPTYLINE
     Indication: SKIN BURNING SENSATION
     Dosage: UNK
     Route: 065

REACTIONS (3)
  - Sedation [Unknown]
  - Treatment failure [Unknown]
  - Abdominal discomfort [Unknown]
